FAERS Safety Report 7576616-0 (Version None)
Quarter: 2011Q2

REPORT INFORMATION
  Report Type: 
  Country: None (occurrence: None)
  Receive Date: 20110624
  Receipt Date: 20110624
  Transmission Date: 20111010
  Serious: Yes (Other)
  Sender: FDA-Public Use
  Company Number: None

PATIENT
  Age: 45 Year
  Sex: Female
  Weight: 68 kg

DRUGS (1)
  1. NEUTROGENA MICRO MIST SUNLESS TANNING SPR [Suspect]
     Indication: THERAPEUTIC SKIN CARE TOPICAL
     Dosage: TOPICAL
     Route: 061
     Dates: start: 20110519, end: 20110520

REACTIONS (4)
  - PRURITUS [None]
  - ACNE [None]
  - RASH ERYTHEMATOUS [None]
  - OEDEMA PERIPHERAL [None]
